FAERS Safety Report 20986599 (Version 1)
Quarter: 2022Q2

REPORT INFORMATION
  Report Type: Spontaneous
  Country: US (occurrence: US)
  Receive Date: 20220621
  Receipt Date: 20220621
  Transmission Date: 20220720
  Serious: No
  Sender: FDA-Public Use
  Company Number: US-Blueprint Medicines Corporation-SP-US-2022-001814

PATIENT
  Sex: Male

DRUGS (1)
  1. AYVAKIT [Suspect]
     Active Substance: AVAPRITINIB
     Indication: Systemic mastocytosis
     Route: 048
     Dates: start: 20220323

REACTIONS (5)
  - Feeling abnormal [Recovered/Resolved]
  - Genital swelling [Recovered/Resolved]
  - Nausea [Recovered/Resolved]
  - Fluid retention [Recovered/Resolved]
  - Alopecia [Recovered/Resolved]
